FAERS Safety Report 12489638 (Version 1)
Quarter: 2016Q2

REPORT INFORMATION
  Report Type: Spontaneous
  Country: IT (occurrence: IT)
  Receive Date: 20160622
  Receipt Date: 20160622
  Transmission Date: 20160815
  Serious: Yes (Hospitalization, Other)
  Sender: FDA-Public Use
  Company Number: IT-MYLANLABS-2016M1025637

PATIENT

DRUGS (1)
  1. TAMOXIFEN [Suspect]
     Active Substance: TAMOXIFEN
     Indication: PRODUCT USED FOR UNKNOWN INDICATION
     Dosage: 20MG
     Route: 048

REACTIONS (3)
  - Wrong drug administered [Recovered/Resolved]
  - Accidental exposure to product [Recovered/Resolved]
  - Electrocardiogram QT prolonged [Recovered/Resolved]
